FAERS Safety Report 4892007-5 (Version None)
Quarter: 2006Q1

REPORT INFORMATION
  Report Type: 
  Country: None (occurrence: None)
  Receive Date: 20060123
  Receipt Date: 20060111
  Transmission Date: 20060701
  Serious: Yes (Hospitalization)
  Sender: FDA-Public Use
  Company Number: 2006008255

PATIENT
  Sex: Male

DRUGS (2)
  1. PREGABALIN (PREGABALIN) [Suspect]
     Indication: ILL-DEFINED DISORDER
     Dosage: (11 GRAM)
  2. LAMOTRIGINE [Suspect]
     Indication: ILL-DEFINED DISORDER
     Dosage: (32.2 GRAM), ORAL
     Route: 048

REACTIONS (6)
  - AGITATION [None]
  - COMA [None]
  - CONVULSION [None]
  - GRAND MAL CONVULSION [None]
  - MULTIPLE DRUG OVERDOSE [None]
  - URINARY RETENTION [None]
